FAERS Safety Report 5074254-5 (Version None)
Quarter: 2006Q3

REPORT INFORMATION
  Report Type: 
  Country: None (occurrence: None)
  Receive Date: 20060803
  Receipt Date: 20060724
  Transmission Date: 20061208
  Serious: Yes (Hospitalization, Other)
  Sender: FDA-Public Use
  Company Number: 2006BH011761

PATIENT
  Age: 5 Month

DRUGS (3)
  1. 5% DEXTROSE AND 0.45% SODIUM CHLORIDE INJECTION IN PLASTIC CONTAINER ( [Suspect]
     Indication: LAPAROSCOPIC SURGERY
     Dosage: 36 ML; EVERY HR; IV
     Route: 042
     Dates: start: 20060520, end: 20060520
  2. SODIUM CHLORIDE [Suspect]
     Indication: LAPAROSCOPIC SURGERY
     Dosage: 3 ML; EVERY HR; IV
     Route: 042
     Dates: start: 20060520, end: 20060520
  3. MORPHINE [Suspect]
     Indication: LAPAROSCOPIC SURGERY
     Dosage: 9 ML; IV
     Route: 042

REACTIONS (5)
  - BLISTER [None]
  - NECROSIS [None]
  - OEDEMA PERIPHERAL [None]
  - POST PROCEDURAL COMPLICATION [None]
  - RESPIRATORY DISTRESS [None]
